FAERS Safety Report 6283106-4 (Version None)
Quarter: 2009Q3

REPORT INFORMATION
  Report Type: 
  Country: None (occurrence: None)
  Receive Date: 20090724
  Receipt Date: 20090716
  Transmission Date: 20100115
  Serious: Yes (Life-Threatening)
  Sender: FDA-Public Use
  Company Number: A0798294A

PATIENT
  Age: 71 Year
  Sex: Female

DRUGS (8)
  1. ARIXTRA [Suspect]
     Indication: HEPARIN-INDUCED THROMBOCYTOPENIA
     Route: 058
     Dates: start: 20090714, end: 20090716
  2. AZACTAM [Concomitant]
  3. PROCRIT [Concomitant]
  4. HYDROCORTISONE [Concomitant]
  5. FLAGYL [Concomitant]
  6. ELECTROLYTES [Concomitant]
  7. POTASSIUM CHLORIDE [Concomitant]
  8. MAGNESIUM [Concomitant]

REACTIONS (3)
  - ACTIVATED PARTIAL THROMBOPLASTIN TIME PROLONGED [None]
  - INTERNATIONAL NORMALISED RATIO INCREASED [None]
  - PROTHROMBIN TIME PROLONGED [None]
